FAERS Safety Report 7324247-X (Version None)
Quarter: 2011Q1

REPORT INFORMATION
  Report Type: 
  Country: None (occurrence: None)
  Receive Date: 20110301
  Receipt Date: 20110222
  Transmission Date: 20110831
  Serious: Yes (Other)
  Sender: FDA-Public Use
  Company Number: US-AMGEN-USASP2011010224

PATIENT
  Age: 65 Year
  Sex: Female

DRUGS (1)
  1. ENBREL [Suspect]
     Indication: RHEUMATOID ARTHRITIS
     Dosage: 50 MG, QWK
     Dates: start: 20110101

REACTIONS (7)
  - OSTEOARTHRITIS [None]
  - GAIT DISTURBANCE [None]
  - JOINT SWELLING [None]
  - PANIC ATTACK [None]
  - OEDEMA PERIPHERAL [None]
  - WALKING AID USER [None]
  - OEDEMA [None]
